FAERS Safety Report 11798227 (Version 1)
Quarter: 2015Q4

REPORT INFORMATION
  Report Type: Spontaneous
  Country: JP (occurrence: JP)
  Receive Date: 20151203
  Receipt Date: 20151203
  Transmission Date: 20160305
  Serious: No
  Sender: FDA-Public Use
  Company Number: JP-ELI_LILLY_AND_COMPANY-JP201511008237

PATIENT
  Age: 75 Year
  Sex: Male

DRUGS (5)
  1. FLIVAS [Concomitant]
     Active Substance: NAFTOPIDIL
  2. FP [Concomitant]
     Active Substance: SELEGILINE HYDROCHLORIDE
  3. NEODOPASTON [Concomitant]
     Active Substance: CARBIDOPA\LEVODOPA
  4. ZALUTIA [Suspect]
     Active Substance: TADALAFIL
     Indication: PRODUCT USED FOR UNKNOWN INDICATION
     Route: 048
  5. CERNILTON                          /00521401/ [Concomitant]

REACTIONS (2)
  - Diplopia [Unknown]
  - Visual acuity reduced [Unknown]
